FAERS Safety Report 9999462 (Version 1)
Quarter: 2014Q1

REPORT INFORMATION
  Report Type: Spontaneous
  Country: US (occurrence: None)
  Receive Date: 20140311
  Receipt Date: 20140311
  Transmission Date: 20141002
  Serious: Yes (Other)
  Sender: FDA-Public Use
  Company Number: None

PATIENT
  Age: 84 Year
  Sex: Male

DRUGS (1)
  1. XTANDI [Suspect]
     Route: 048

REACTIONS (4)
  - Rash [None]
  - Chest discomfort [None]
  - Visual impairment [None]
  - Neuropathy peripheral [None]
